FAERS Safety Report 20278773 (Version 4)
Quarter: 2022Q1

REPORT INFORMATION
  Report Type: Report from Study
  Country: PL (occurrence: None)
  Receive Date: 20220103
  Receipt Date: 20220119
  Transmission Date: 20220423
  Serious: Yes (Hospitalization)
  Sender: FDA-Public Use
  Company Number: PL-ROCHE-2988325

PATIENT
  Age: 47 Year
  Sex: Male
  Weight: 99 kg

DRUGS (18)
  1. OCRELIZUMAB [Suspect]
     Active Substance: OCRELIZUMAB
     Indication: Relapsing-remitting multiple sclerosis
     Dosage: DATE OF MOST RECENT DOSE OF OCRELIZUMAB PRIOR TO THIS EVENT ONSET:25/OCT/2021
     Route: 042
     Dates: start: 20181220
  2. METHYLPREDNISOLONE [Suspect]
     Active Substance: METHYLPREDNISOLONE
     Indication: Premedication
     Dosage: SUBSEQUENT DOSES : 03/JAN/2019, 06/JUN/2019, 21/NOV/2019, 21/MAY/2020, 17/NOV/2020, 22/APR/2021, 25/
     Route: 042
     Dates: start: 20181220
  3. ZYRTEC (POLAND) [Concomitant]
     Route: 048
     Dates: start: 20181220, end: 20181220
  4. ZYRTEC (POLAND) [Concomitant]
     Dosage: NEXT DOSE: 03/JAN/2019, 06/JUN/2019, 21/NOV/2019, 21/MAY/2020,17/NOV/2020
     Route: 048
     Dates: start: 20211025, end: 20211025
  5. ACETAMINOPHEN [Concomitant]
     Active Substance: ACETAMINOPHEN
     Route: 048
     Dates: start: 20181220, end: 20181220
  6. ACETAMINOPHEN [Concomitant]
     Active Substance: ACETAMINOPHEN
     Route: 048
     Dates: start: 20190103, end: 20190103
  7. CETIRIZINE HYDROCHLORIDE [Concomitant]
     Active Substance: CETIRIZINE HYDROCHLORIDE
     Route: 048
     Dates: start: 20210422, end: 20210422
  8. ATORVASTATIN CALCIUM [Concomitant]
     Active Substance: ATORVASTATIN CALCIUM
     Dates: start: 20190730
  9. BETANIL [Concomitant]
     Route: 048
     Dates: start: 20190301, end: 20190730
  10. BIBLOC (POLAND) [Concomitant]
     Route: 048
     Dates: start: 20210618
  11. COMIRNATY [Concomitant]
     Active Substance: TOZINAMERAN
     Route: 030
     Dates: start: 20210618, end: 20210618
  12. COMIRNATY [Concomitant]
     Active Substance: TOZINAMERAN
     Route: 030
     Dates: start: 20210709, end: 20210709
  13. DIMETHICONE [Concomitant]
     Active Substance: DIMETHICONE
  14. NEBIVOLOL [Concomitant]
     Active Substance: NEBIVOLOL
     Route: 048
     Dates: start: 20200729, end: 20200825
  15. NEBIVOLOL [Concomitant]
     Active Substance: NEBIVOLOL
     Route: 048
     Dates: start: 20210615
  16. TAMSULOSIN [Concomitant]
     Active Substance: TAMSULOSIN
     Route: 048
     Dates: start: 20181025
  17. VIREGYT [Concomitant]
     Route: 048
     Dates: start: 20190528
  18. VITAMIN D3 [Concomitant]
     Active Substance: CHOLECALCIFEROL
     Route: 048
     Dates: start: 20181003

REACTIONS (1)
  - COVID-19 pneumonia [Recovered/Resolved with Sequelae]

NARRATIVE: CASE EVENT DATE: 20211108
